FAERS Safety Report 5258032-X (Version None)
Quarter: 2007Q1

REPORT INFORMATION
  Report Type: 
  Country: None (occurrence: None)
  Receive Date: 20070307
  Receipt Date: 20061219
  Transmission Date: 20070707
  Serious: No
  Sender: FDA-Public Use
  Company Number: US-GLAXOSMITHKLINE-A0632135A

PATIENT
  Age: 68 Year
  Sex: Female

DRUGS (2)
  1. REQUIP [Suspect]
     Indication: RESTLESS LEGS SYNDROME
     Dosage: .25 PER DAY
     Route: 048
     Dates: start: 20061218
  2. THYROID SUPPLEMENT [Concomitant]

REACTIONS (4)
  - CHEST PAIN [None]
  - COLD SWEAT [None]
  - DIZZINESS [None]
  - MUSCULOSKELETAL PAIN [None]
